FAERS Safety Report 5550953-3 (Version None)
Quarter: 2007Q4

REPORT INFORMATION
  Report Type: 
  Country: None (occurrence: None)
  Receive Date: 20071210
  Receipt Date: 20071123
  Transmission Date: 20080405
  Serious: Yes (Hospitalization)
  Sender: FDA-Public Use
  Company Number: S07-FRA-06171-01

PATIENT
  Age: 64 Year
  Sex: Female

DRUGS (7)
  1. ESCITALOPRAM [Suspect]
     Dates: start: 20070713, end: 20070808
  2. OXAZEPAM [Concomitant]
  3. ZOLPIDEM TARTRATE [Concomitant]
  4. DIAMICRON (GLICLAZIDE) [Concomitant]
  5. TENSTATEN (CICLETANINE) [Concomitant]
  6. BISOPROLOL FUMARATE [Concomitant]
  7. THERALENE (ALIMEMAZINE TARTRATE) [Concomitant]

REACTIONS (3)
  - BLOOD IMMUNOGLOBULIN A INCREASED [None]
  - DRUG INTERACTION [None]
  - LEUKOCYTOCLASTIC VASCULITIS [None]
